FAERS Safety Report 15327563 (Version 4)
Quarter: 2018Q4

REPORT INFORMATION
  Report Type: Report from Study
  Country: US (occurrence: US)
  Receive Date: 20180828
  Receipt Date: 20181114
  Transmission Date: 20190204
  Serious: Yes (Hospitalization)
  Sender: FDA-Public Use
  Company Number: US-ACTELION-A-NJ2018-176816

PATIENT
  Age: 72 Year
  Sex: Female
  Weight: 61.22 kg

DRUGS (4)
  1. UPTRAVI [Suspect]
     Active Substance: SELEXIPAG
     Dosage: 600 MCG, BID
     Route: 048
  2. SILDENAFIL. [Concomitant]
     Active Substance: SILDENAFIL
  3. UPTRAVI [Suspect]
     Active Substance: SELEXIPAG
     Indication: PULMONARY HYPERTENSION
     Dosage: 400 MCG, BID
     Route: 048
     Dates: start: 20180807
  4. IRON [Suspect]
     Active Substance: IRON
     Indication: PRODUCT USED FOR UNKNOWN INDICATION
     Route: 042

REACTIONS (15)
  - Localised infection [Unknown]
  - Diarrhoea [Not Recovered/Not Resolved]
  - White blood cell count decreased [Unknown]
  - Pain [Unknown]
  - Viral myelitis [Unknown]
  - Headache [Unknown]
  - Myalgia [Unknown]
  - Anaemia [Unknown]
  - Malaise [Unknown]
  - Pain in jaw [Unknown]
  - Fungal infection [Unknown]
  - Aspergillus infection [Unknown]
  - Abscess [Unknown]
  - Paraesthesia [Unknown]
  - Nausea [Unknown]
